FAERS Safety Report 20756725 (Version 2)
Quarter: 2022Q2

REPORT INFORMATION
  Report Type: Spontaneous
  Country: ES (occurrence: ES)
  Receive Date: 20220427
  Receipt Date: 20220505
  Transmission Date: 20220721
  Serious: Yes (Other)
  Sender: FDA-Public Use
  Company Number: ES-009507513-2204ESP008270

PATIENT
  Age: 60 Year
  Sex: Female
  Weight: 55 kg

DRUGS (2)
  1. BRIDION [Suspect]
     Active Substance: SUGAMMADEX
     Indication: Neuromuscular blockade reversal
     Dosage: DOSES STIPULATED BY THE NUMBER OF RESPONSES IN TOF MONITORING
     Dates: start: 20220412, end: 20220412
  2. ROCURONIUM BROMIDE [Suspect]
     Active Substance: ROCURONIUM BROMIDE
     Indication: Induction and maintenance of anaesthesia
     Dosage: STANDARD DOSE AND CONTINUED WITH 0,3 MG/KG/H
     Route: 041
     Dates: start: 20220412, end: 20220412

REACTIONS (4)
  - Hypoventilation [Recovered/Resolved]
  - Therapeutic product effect decreased [Recovered/Resolved]
  - Neuromuscular block prolonged [Recovered/Resolved]
  - Product use issue [Unknown]

NARRATIVE: CASE EVENT DATE: 20220412
